FAERS Safety Report 14686614 (Version 1)
Quarter: 2018Q1

REPORT INFORMATION
  Report Type: Other
  Country: GB (occurrence: GB)
  Receive Date: 20180327
  Receipt Date: 20180327
  Transmission Date: 20180509
  Serious: Yes (Hospitalization)
  Sender: FDA-Public Use
  Company Number: GB-GE HEALTHCARE LIFE SCIENCES-2018CSU001116

PATIENT

DRUGS (1)
  1. DATSCAN [Suspect]
     Active Substance: IODINE\IOFLUPANE I-123
     Indication: PRODUCT USED FOR UNKNOWN INDICATION
     Dosage: UNK, SINGLE
     Route: 065
     Dates: start: 20180202, end: 20180202

REACTIONS (4)
  - Feeling cold [Unknown]
  - Dementia [Unknown]
  - Ill-defined disorder [Unknown]
  - Erythema [Unknown]

NARRATIVE: CASE EVENT DATE: 20180205
